FAERS Safety Report 8583738-4 (Version None)
Quarter: 2012Q3

REPORT INFORMATION
  Report Type: 
  Country: None (occurrence: None)
  Receive Date: 20120810
  Receipt Date: 20120723
  Transmission Date: 20120928
  Serious: Yes (Other)
  Sender: FDA-Public Use
  Company Number: US-009507513-1207USA001324

PATIENT

DRUGS (7)
  1. REBETOL [Suspect]
     Indication: HEPATITIS C
     Dosage: 200 MG, UNK
     Route: 048
     Dates: start: 20120309
  2. TELAPREVIR [Suspect]
     Indication: HEPATITIS C
     Dosage: UNK
     Dates: start: 20120309
  3. VALIUM [Concomitant]
     Dosage: 2 MG, UNK
  4. ADVIL [Concomitant]
     Dosage: 200 MG, UNK
  5. PEG-INTRON [Suspect]
     Indication: HEPATITIS C
     Dosage: 150 MICROGRAM, QW
     Route: 058
     Dates: start: 20120309
  6. XANAX [Concomitant]
     Dosage: 0.25 MG, UNK
  7. AMBIEN [Concomitant]
     Dosage: 10 MG, UNK

REACTIONS (24)
  - PAIN [None]
  - DIZZINESS [None]
  - PYREXIA [None]
  - DEPRESSION [None]
  - GLUCOSE TOLERANCE IMPAIRED [None]
  - NECK PAIN [None]
  - BREATH ODOUR [None]
  - SLEEP DISORDER [None]
  - MOOD ALTERED [None]
  - POLYURIA [None]
  - HYPOAESTHESIA [None]
  - ANAEMIA [None]
  - FEELING ABNORMAL [None]
  - MENTAL IMPAIRMENT [None]
  - TREMOR [None]
  - HEADACHE [None]
  - VISUAL IMPAIRMENT [None]
  - OROPHARYNGEAL DISCOMFORT [None]
  - SINUS CONGESTION [None]
  - ASTHENIA [None]
  - MYALGIA [None]
  - DRY MOUTH [None]
  - NAUSEA [None]
  - CHEST PAIN [None]
